FAERS Safety Report 9002083 (Version 1)
Quarter: 2013Q1

REPORT INFORMATION
  Report Type: Spontaneous
  Country: US (occurrence: None)
  Receive Date: 20130102
  Receipt Date: 20130102
  Transmission Date: 20140127
  Serious: Yes (Hospitalization)
  Sender: FDA-Public Use
  Company Number: None

PATIENT
  Age: 50 Year
  Sex: Male
  Weight: 136.7 kg

DRUGS (2)
  1. AZITHROMYCIN [Suspect]
     Dosage: ~11/04/2012 THRU ~11/10/2012?MG   PO
     Route: 048
     Dates: start: 20121104, end: 20121110
  2. HYDROCHLOROTHIAZIDE/LISINOPRIL [Suspect]
     Dosage: ~09/19/2012 THRU ~11/10/2012?MG      PO
     Route: 048
     Dates: start: 20120919, end: 20121110

REACTIONS (1)
  - Angioedema [None]
